FAERS Safety Report 4436116-3 (Version None)
Quarter: 2004Q3

REPORT INFORMATION
  Report Type: 
  Country: None (occurrence: None)
  Receive Date: 20040726
  Receipt Date: 20040405
  Transmission Date: 20050211
  Serious: No
  Sender: FDA-Public Use
  Company Number: USA030330226

PATIENT
  Age: 72 Year
  Sex: Male
  Weight: 67 kg

DRUGS (6)
  1. FORTEO [Suspect]
     Indication: OSTEOPOROSIS
     Dosage: 20 UG/DAY
     Dates: start: 20030128
  2. ASPIRIN [Concomitant]
  3. CALCIUM [Concomitant]
  4. PHENOBARBITAL TAB [Concomitant]
  5. SYNTHROID [Concomitant]
  6. ZETIA [Concomitant]

REACTIONS (5)
  - ASTHENIA [None]
  - BONE DENSITY DECREASED [None]
  - CARDIAC DISORDER [None]
  - DYSPEPSIA [None]
  - FLATULENCE [None]
